FAERS Safety Report 6784517-0 (Version None)
Quarter: 2010Q2

REPORT INFORMATION
  Report Type: 
  Country: None (occurrence: None)
  Receive Date: 20100622
  Receipt Date: 20100609
  Transmission Date: 20101027
  Serious: Yes (Death)
  Sender: FDA-Public Use
  Company Number: FR-ROCHE-708573

PATIENT
  Sex: Female
  Weight: 56.5 kg

DRUGS (17)
  1. METHOXY POLYETHYLENE GLYCOL-EPOETIN BETA [Suspect]
     Dosage: FREQUENCY: EVERY MONTH (QM), FORM: SYRINGE, LAST DOSE PRIOR TO SAE: 2 JUNE 2010
     Route: 042
     Dates: start: 20100203
  2. FOLIC ACID [Concomitant]
     Dates: start: 20080206
  3. AMLODIPINE [Concomitant]
     Dates: start: 20080206
  4. DACRYOSERUM [Concomitant]
     Dates: start: 20091116
  5. DOLIPRANE [Concomitant]
     Dates: start: 20100201
  6. KARDEGIC [Concomitant]
     Dates: start: 20090401
  7. INSULIN MIXTARD 30 HM [Concomitant]
     Dosage: DRUG NAME REPORTED AS: INSULINE MIXTARD, TDD REPORTED AS: NA
     Dates: start: 20080402
  8. CINACALCET HYDROCHLORIDE [Concomitant]
     Dates: start: 20090601
  9. OMEPRAZOLE [Concomitant]
     Dates: start: 20080206
  10. TAHOR [Concomitant]
     Dates: start: 20090401
  11. TENORMIN [Concomitant]
     Dates: start: 20090408
  12. UVEDOSE [Concomitant]
     Dosage: TDD REPORTED AS : NA
     Dates: start: 20090626
  13. PERFALGAN [Concomitant]
     Dates: start: 20080827
  14. VENOFER [Concomitant]
     Dosage: TDD REPORTED AS: NA
     Dates: start: 20100111
  15. CACIT [Concomitant]
     Dates: start: 20090422
  16. LOVENOX [Concomitant]
     Dates: start: 20080716
  17. KAYEXALATE [Concomitant]
     Dates: start: 20080206

REACTIONS (1)
  - DEATH [None]
